FAERS Safety Report 19807146 (Version 2)
Quarter: 2021Q3

REPORT INFORMATION
  Report Type: Spontaneous
  Country: AR (occurrence: AR)
  Receive Date: 20210909
  Receipt Date: 20210920
  Transmission Date: 20211014
  Serious: Yes (Disabling, Other)
  Sender: FDA-Public Use
  Company Number: AR-AMGEN-ARGSP2021139194

PATIENT
  Age: 84 Year
  Sex: Female

DRUGS (3)
  1. CORTIPYREN B [Concomitant]
     Dosage: 4 MG
  2. ENBREL [Suspect]
     Active Substance: ETANERCEPT
     Indication: RHEUMATOID ARTHRITIS
     Dosage: 50 MG, WEEKLY
     Route: 065
     Dates: start: 20170126
  3. ARTRAIT [METHOTREXATE SODIUM] [Concomitant]
     Active Substance: METHOTREXATE SODIUM
     Dosage: 15 MG

REACTIONS (2)
  - Gait inability [Recovered/Resolved]
  - Pain in extremity [Unknown]
